FAERS Safety Report 4440498-6 (Version None)
Quarter: 2004Q3

REPORT INFORMATION
  Report Type: 
  Country: None (occurrence: None)
  Receive Date: 20040728
  Receipt Date: 20040331
  Transmission Date: 20050211
  Serious: No
  Sender: FDA-Public Use
  Company Number: USA030845422

PATIENT
  Age: 53 Year
  Sex: Male
  Weight: 82 kg

DRUGS (10)
  1. STRATTERA [Suspect]
     Indication: ATTENTION DEFICIT/HYPERACTIVITY DISORDER
     Dosage: 80 MG DAY
     Dates: start: 20030101
  2. CIALIS [Suspect]
     Indication: ERECTILE DYSFUNCTION
     Dosage: 20 MG
  3. DIAZEPAM [Concomitant]
  4. NEXIUM [Concomitant]
  5. VIOXX [Concomitant]
  6. NEURONTIN [Concomitant]
  7. TRAMADOL HCL [Concomitant]
  8. RELAFEN [Concomitant]
  9. TESTOSTERONE [Concomitant]
  10. VIAGRA [Concomitant]

REACTIONS (6)
  - DRUG INEFFECTIVE [None]
  - ERECTILE DYSFUNCTION [None]
  - IMPAIRED WORK ABILITY [None]
  - ORGASM ABNORMAL [None]
  - ORGASMIC SENSATION DECREASED [None]
  - SEXUAL DYSFUNCTION [None]
